FAERS Safety Report 17078944 (Version 3)
Quarter: 2019Q4

REPORT INFORMATION
  Report Type: Spontaneous
  Country: IL (occurrence: IL)
  Receive Date: 20191127
  Receipt Date: 20191218
  Transmission Date: 20200122
  Serious: Yes (Death, Hospitalization, Other)
  Sender: FDA-Public Use
  Company Number: IL-ALEXION PHARMACEUTICALS INC.-A201917934

PATIENT
  Age: 40 Year
  Sex: Female

DRUGS (3)
  1. SOLIRIS [Suspect]
     Active Substance: ECULIZUMAB
     Indication: OFF LABEL USE
  2. SOLIRIS [Suspect]
     Active Substance: ECULIZUMAB
     Indication: COMPLEMENT DEFICIENCY DISEASE
     Dosage: UNK
     Route: 065
     Dates: start: 201905, end: 2019
  3. MOXYPEN                            /00249602/ [Concomitant]
     Indication: ANTIBIOTIC PROPHYLAXIS
     Dosage: UNK
     Route: 065

REACTIONS (9)
  - Infection [Unknown]
  - Pyrexia [Unknown]
  - Hepatic mass [Unknown]
  - Angiosarcoma [Unknown]
  - Off label use [Recovered/Resolved]
  - Death [Fatal]
  - Abdominal discomfort [Not Recovered/Not Resolved]
  - Hepatic neoplasm [Unknown]
  - Mediastinal mass [Unknown]

NARRATIVE: CASE EVENT DATE: 2019
